FAERS Safety Report 13152422 (Version 1)
Quarter: 2017Q1

REPORT INFORMATION
  Report Type: Spontaneous
  Country: IE (occurrence: IE)
  Receive Date: 20170125
  Receipt Date: 20170125
  Transmission Date: 20170428
  Serious: Yes (Hospitalization, Other)
  Sender: FDA-Public Use
  Company Number: IE-AMGEN-IRLSP2017012279

PATIENT
  Age: 81 Year
  Sex: Female

DRUGS (1)
  1. ENBREL [Suspect]
     Active Substance: ETANERCEPT
     Indication: RHEUMATOID ARTHRITIS
     Dosage: 50MG, UNK
     Route: 058
     Dates: start: 2016

REACTIONS (3)
  - Arthralgia [Unknown]
  - Kidney infection [Unknown]
  - Pain [Unknown]

NARRATIVE: CASE EVENT DATE: 2016
